FAERS Safety Report 7796493-2 (Version None)
Quarter: 2011Q4

REPORT INFORMATION
  Report Type: 
  Country: None (occurrence: None)
  Receive Date: 20111005
  Receipt Date: 20110927
  Transmission Date: 20120403
  Serious: Yes (Hospitalization)
  Sender: FDA-Public Use
  Company Number: JP-SP-2011-03930

PATIENT
  Sex: Male

DRUGS (1)
  1. IMMUCYST [Suspect]
     Indication: BLADDER CANCER
     Route: 043
     Dates: start: 20110514, end: 20110618

REACTIONS (4)
  - ABDOMINAL PAIN LOWER [None]
  - POLLAKIURIA [None]
  - DYSURIA [None]
  - CONTRACTED BLADDER [None]
